FAERS Safety Report 5563261-1 (Version None)
Quarter: 2007Q4

REPORT INFORMATION
  Report Type: 
  Country: None (occurrence: None)
  Receive Date: 20071211
  Receipt Date: 20071126
  Transmission Date: 20080405
  Serious: Yes (Death, Other)
  Sender: FDA-Public Use
  Company Number: 2007002298

PATIENT
  Age: 60 Year
  Sex: Male

DRUGS (3)
  1. TARCEVA [Suspect]
     Indication: NON-SMALL CELL LUNG CANCER
     Dosage: 150 MG, QD, ORAL
     Route: 048
     Dates: start: 20071001, end: 20071111
  2. CISPLATIN [Concomitant]
  3. PACLITAXEL [Concomitant]

REACTIONS (3)
  - CYANOSIS [None]
  - FACE OEDEMA [None]
  - SUPERIOR VENA CAVAL OCCLUSION [None]
